FAERS Safety Report 4504032-4 (Version None)
Quarter: 2004Q4

REPORT INFORMATION
  Report Type: 
  Country: None (occurrence: None)
  Receive Date: 20041115
  Receipt Date: 20041102
  Transmission Date: 20050328
  Serious: Yes (Other)
  Sender: FDA-Public Use
  Company Number: 2004086295

PATIENT
  Age: 34 Year
  Sex: Female
  Weight: 73.4827 kg

DRUGS (9)
  1. BENGAY VANISHING (MENTHOL) [Suspect]
     Indication: BACK PAIN
     Dosage: ^A LOT , TWICE WEEKLY, TOPICAL
     Route: 061
     Dates: start: 19540101
  2. QUINAPRIL HCL [Concomitant]
  3. DOXAZOSIN MESILATE (DOXAZOSIN MESILATE0 [Concomitant]
  4. LEVOTHYROXINE SODIUM [Concomitant]
  5. HYDROCHLOROTHIAZIDE [Concomitant]
  6. ATENOLOL [Concomitant]
  7. AMLODIPINE BESYLATE [Concomitant]
  8. ALPRAZOLAM [Concomitant]
  9. ACETAMINOPHEN [Concomitant]

REACTIONS (3)
  - BLADDER CANCER [None]
  - CERVIX CARCINOMA [None]
  - DRUG INEFFECTIVE [None]
